FAERS Safety Report 5605635-6 (Version None)
Quarter: 2008Q1

REPORT INFORMATION
  Report Type: 
  Country: None (occurrence: None)
  Receive Date: 20080123
  Receipt Date: 20080123
  Transmission Date: 20080703
  Serious: Yes (Death, Life-Threatening, Hospitalization)
  Sender: FDA-Public Use
  Company Number: None

PATIENT
  Age: 68 Year
  Sex: Male

DRUGS (2)
  1. HEPARIN [Suspect]
     Indication: MYOCARDIAL INFARCTION
     Dosage: 1000 UNITS  N/A   IV BOLUS;  5000 UNITS IV BOLUS
     Route: 040
     Dates: start: 19980717, end: 19980721
  2. HEPARIN [Suspect]
     Indication: MYOCARDIAL INFARCTION
     Dosage: 1000 UNITS  N/A   IV BOLUS;  5000 UNITS IV BOLUS
     Route: 040
     Dates: start: 19980717, end: 19980721

REACTIONS (4)
  - COMA [None]
  - HAEMORRHAGE INTRACRANIAL [None]
  - OVERDOSE [None]
  - UNRESPONSIVE TO STIMULI [None]
